FAERS Safety Report 8537609-X (Version None)
Quarter: 2012Q3

REPORT INFORMATION
  Report Type: 
  Country: None (occurrence: None)
  Receive Date: 20120725
  Receipt Date: 20120717
  Transmission Date: 20120928
  Serious: Yes (Hospitalization)
  Sender: FDA-Public Use
  Company Number: NL-JNJFOC-20120709169

PATIENT
  Age: 53 Year
  Sex: Female

DRUGS (1)
  1. REMICADE [Suspect]
     Indication: PRODUCT USED FOR UNKNOWN INDICATION
     Dosage: DOSE: 500 MG.
     Route: 042
     Dates: start: 20110501

REACTIONS (2)
  - PNEUMONIA LEGIONELLA [None]
  - SINUS TACHYCARDIA [None]
